FAERS Safety Report 16939111 (Version 4)
Quarter: 2021Q2

REPORT INFORMATION
  Report Type: Spontaneous
  Country: PK (occurrence: PK)
  Receive Date: 20191020
  Receipt Date: 20210415
  Transmission Date: 20210716
  Serious: Yes (Other)
  Sender: FDA-Public Use
  Company Number: PK-AMGEN-PAKSP2019156144

PATIENT
  Age: 38 Year
  Sex: Female
  Weight: 56 kg

DRUGS (8)
  1. ENBREL [Suspect]
     Active Substance: ETANERCEPT
     Dosage: 50 MG, EVERY 10 DAYS
     Route: 058
  2. INDROP?D [Concomitant]
     Dosage: 200000 IU (1 CAPS), MONTHLY FOR 4 MONTHS AFTER BREAKFAST
     Route: 048
     Dates: start: 2013
  3. FEFOL VIT [Concomitant]
     Dosage: 150 MG (1 CAP), 1X/DAY FOR 4 MONTHS AFTER MEAL
     Route: 048
     Dates: start: 20191005
  4. ENBREL [Suspect]
     Active Substance: ETANERCEPT
     Indication: ANKYLOSING SPONDYLITIS
     Dosage: 50 MG, WEEKLY FOR 4 MONTHS AFTER MEAL
     Route: 058
     Dates: start: 201809
  5. COMFORTA [Concomitant]
     Dosage: 10 MG (1/2 TABS), 1X/DAY FOR 3 MONTHS AFTER DINNER
     Route: 048
     Dates: start: 2018
  6. ENBREL [Suspect]
     Active Substance: ETANERCEPT
     Dosage: 50 MG, WEEKLY
     Route: 058
  7. NUBEROL [Concomitant]
     Dosage: 700 MG (1 TAB), 1X/DAY FOR 3 MONTHS AFTER BREAKFAST
     Route: 048
     Dates: start: 2018
  8. VOLTRAL [DICLOFENAC DIETHYLAMINE] [Concomitant]
     Dosage: FIVE DAYS APPLY ON BACK

REACTIONS (8)
  - Proteinuria [Recovered/Resolved]
  - Musculoskeletal stiffness [Unknown]
  - Back pain [Unknown]
  - Chronic kidney disease [Recovered/Resolved]
  - Uveitis [Recovered/Resolved]
  - Pain [Not Recovered/Not Resolved]
  - Off label use [Unknown]
  - Sacroiliitis [Unknown]

NARRATIVE: CASE EVENT DATE: 20191005
